FAERS Safety Report 7177022-3 (Version None)
Quarter: 2010Q4

REPORT INFORMATION
  Report Type: 
  Country: None (occurrence: None)
  Receive Date: 20101220
  Receipt Date: 20101214
  Transmission Date: 20110411
  Serious: Yes (Other)
  Sender: FDA-Public Use
  Company Number: US-AMGEN-USASP2010009466

PATIENT

DRUGS (2)
  1. ENBREL [Suspect]
     Indication: RHEUMATOID ARTHRITIS
     Dates: start: 20050103
  2. LEFLUNOMIDE [Concomitant]
     Dosage: 1 MG, QD
     Dates: start: 20050103

REACTIONS (2)
  - CARDIOVASCULAR INSUFFICIENCY [None]
  - JOINT EFFUSION [None]
